FAERS Safety Report 6077833-1 (Version None)
Quarter: 2009Q1

REPORT INFORMATION
  Report Type: 
  Country: None (occurrence: None)
  Receive Date: 20090213
  Receipt Date: 20090130
  Transmission Date: 20090719
  Serious: Yes (Hospitalization)
  Sender: FDA-Public Use
  Company Number: CA-ELI_LILLY_AND_COMPANY-CA200902000159

PATIENT
  Age: 59 Year
  Sex: Female

DRUGS (6)
  1. FORTEO [Suspect]
     Indication: OSTEOPOROSIS
     Dosage: 20 UG, DAILY (1/D)
     Route: 058
     Dates: start: 20080517
  2. NORVASC [Concomitant]
  3. PANTOPRAZOLE SODIUM [Concomitant]
  4. VITAMIN D [Concomitant]
  5. CALCIUM [Concomitant]
  6. GLAXAL BASE [Concomitant]

REACTIONS (2)
  - DIARRHOEA [None]
  - RASH PRURITIC [None]
